FAERS Safety Report 4448250-2 (Version None)
Quarter: 2004Q3

REPORT INFORMATION
  Report Type: 
  Country: None (occurrence: None)
  Receive Date: 20040910
  Receipt Date: 20040728
  Transmission Date: 20050211
  Serious: Yes (Hospitalization)
  Sender: FDA-Public Use
  Company Number: 601418

PATIENT
  Age: 29 Year
  Sex: Female

DRUGS (2)
  1. ALBUMIN (HUMAN) [Suspect]
     Indication: CONGENITAL ATRIAL SEPTAL DEFECT
     Dosage: 5 ML; ONCE
     Dates: start: 20040330, end: 20040330
  2. ALBUMIN (HUMAN) [Suspect]
     Indication: DIAGNOSTIC PROCEDURE
     Dosage: 5 ML; ONCE
     Dates: start: 20040330, end: 20040330

REACTIONS (1)
  - ANAPHYLACTIC REACTION [None]
